FAERS Safety Report 7248714-2 (Version None)
Quarter: 2011Q1

REPORT INFORMATION
  Report Type: 
  Country: None (occurrence: None)
  Receive Date: 20110121
  Receipt Date: 20110121
  Transmission Date: 20110831
  Serious: Yes (Other)
  Sender: FDA-Public Use
  Company Number: None

PATIENT
  Sex: Male
  Weight: 86.2 kg

DRUGS (2)
  1. METOPROLOL TARTRATE [Suspect]
     Indication: ESSENTIAL HYPERTENSION
     Dosage: 50MG BID ORAL
     Route: 048
     Dates: start: 20101105, end: 20101110
  2. METOPROLOL SUCCINATE EXTENDED RELEASE [Suspect]

REACTIONS (2)
  - CIRCUMSTANCE OR INFORMATION CAPABLE OF LEADING TO MEDICATION ERROR [None]
  - MEDICATION ERROR [None]
